FAERS Safety Report 5312756-4 (Version None)
Quarter: 2007Q2

REPORT INFORMATION
  Report Type: 
  Country: None (occurrence: None)
  Receive Date: 20070430
  Receipt Date: 20070425
  Transmission Date: 20071010
  Serious: Yes (Other)
  Sender: FDA-Public Use
  Company Number: AT-ROXANE LABORATORIES, INC-2007-DE-02431GD

PATIENT
  Age: 22 Year
  Sex: Male

DRUGS (4)
  1. SERTRALINE [Suspect]
     Indication: DEPRESSED MOOD
     Dates: start: 20050201, end: 20050301
  2. SERTRALINE [Suspect]
     Indication: ASTHENIA
     Dates: start: 20050501
  3. SERTRALINE [Suspect]
     Indication: DEPRESSIVE SYMPTOM
  4. RISPERIDONE [Suspect]
     Indication: SCHIZOPHRENIA
     Dosage: STARTED AT 4 MG, TAPERED GRADUALLY TO 3 MG
     Dates: start: 20040401

REACTIONS (2)
  - ERECTION INCREASED [None]
  - PRIAPISM [None]
